FAERS Safety Report 15128824 (Version 1)
Quarter: 2018Q3

REPORT INFORMATION
  Report Type: Spontaneous
  Country: PL (occurrence: PL)
  Receive Date: 20180711
  Receipt Date: 20180711
  Transmission Date: 20181010
  Serious: Yes (Other)
  Sender: FDA-Public Use
  Company Number: PL-ASTRAZENECA-2018SE87827

PATIENT
  Sex: Female

DRUGS (25)
  1. LYNPARZA [Suspect]
     Active Substance: OLAPARIB
     Indication: ILL-DEFINED DISORDER
     Dosage: 1ST ADMINISTRATION
     Route: 048
     Dates: start: 20161103
  2. LYNPARZA [Suspect]
     Active Substance: OLAPARIB
     Indication: OVARIAN CANCER
     Dosage: 2ND ADMINISTRATION
     Route: 048
     Dates: start: 20161201
  3. LYNPARZA [Suspect]
     Active Substance: OLAPARIB
     Indication: ILL-DEFINED DISORDER
     Dosage: 3RD ADMINISTRATION
     Route: 048
     Dates: start: 20170112
  4. LYNPARZA [Suspect]
     Active Substance: OLAPARIB
     Indication: OVARIAN CANCER
     Dosage: 4TH ADMINISTRATION
     Route: 048
     Dates: start: 20170209
  5. LYNPARZA [Suspect]
     Active Substance: OLAPARIB
     Indication: FALLOPIAN TUBE CANCER
     Dosage: 4TH ADMINISTRATION
     Route: 048
     Dates: start: 20170209
  6. LYNPARZA [Suspect]
     Active Substance: OLAPARIB
     Indication: FALLOPIAN TUBE CANCER
     Dosage: 5TH ADMINISTRATION
     Route: 048
     Dates: start: 20170309, end: 20170323
  7. LYNPARZA [Suspect]
     Active Substance: OLAPARIB
     Indication: PROPHYLAXIS
     Dosage: 3RD ADMINISTRATION
     Route: 048
     Dates: start: 20170112
  8. LYNPARZA [Suspect]
     Active Substance: OLAPARIB
     Indication: ILL-DEFINED DISORDER
     Dosage: 4TH ADMINISTRATION
     Route: 048
     Dates: start: 20170209
  9. LYNPARZA [Suspect]
     Active Substance: OLAPARIB
     Indication: MALIGNANT PERITONEAL NEOPLASM
     Dosage: 1ST ADMINISTRATION
     Route: 048
     Dates: start: 20161103
  10. LYNPARZA [Suspect]
     Active Substance: OLAPARIB
     Indication: PROPHYLAXIS
     Dosage: 2ND ADMINISTRATION
     Route: 048
     Dates: start: 20161201
  11. LYNPARZA [Suspect]
     Active Substance: OLAPARIB
     Indication: OVARIAN CANCER
     Dosage: 5TH ADMINISTRATION
     Route: 048
     Dates: start: 20170309, end: 20170323
  12. LYNPARZA [Suspect]
     Active Substance: OLAPARIB
     Indication: PROPHYLAXIS
     Dosage: 1ST ADMINISTRATION
     Route: 048
     Dates: start: 20161103
  13. LYNPARZA [Suspect]
     Active Substance: OLAPARIB
     Indication: FALLOPIAN TUBE CANCER
     Dosage: 3RD ADMINISTRATION
     Route: 048
     Dates: start: 20170112
  14. LYNPARZA [Suspect]
     Active Substance: OLAPARIB
     Indication: MALIGNANT PERITONEAL NEOPLASM
     Dosage: 3RD ADMINISTRATION
     Route: 048
     Dates: start: 20170112
  15. LYNPARZA [Suspect]
     Active Substance: OLAPARIB
     Indication: PROPHYLAXIS
     Dosage: 4TH ADMINISTRATION
     Route: 048
     Dates: start: 20170209
  16. LYNPARZA [Suspect]
     Active Substance: OLAPARIB
     Indication: OVARIAN CANCER
     Dosage: 1ST ADMINISTRATION
     Route: 048
     Dates: start: 20161103
  17. LYNPARZA [Suspect]
     Active Substance: OLAPARIB
     Indication: FALLOPIAN TUBE CANCER
     Dosage: 1ST ADMINISTRATION
     Route: 048
     Dates: start: 20161103
  18. LYNPARZA [Suspect]
     Active Substance: OLAPARIB
     Indication: MALIGNANT PERITONEAL NEOPLASM
     Dosage: 4TH ADMINISTRATION
     Route: 048
     Dates: start: 20170209
  19. LYNPARZA [Suspect]
     Active Substance: OLAPARIB
     Indication: PROPHYLAXIS
     Dosage: 5TH ADMINISTRATION
     Route: 048
     Dates: start: 20170309, end: 20170323
  20. LYNPARZA [Suspect]
     Active Substance: OLAPARIB
     Indication: ILL-DEFINED DISORDER
     Dosage: 2ND ADMINISTRATION
     Route: 048
     Dates: start: 20161201
  21. LYNPARZA [Suspect]
     Active Substance: OLAPARIB
     Indication: ILL-DEFINED DISORDER
     Dosage: 5TH ADMINISTRATION
     Route: 048
     Dates: start: 20170309, end: 20170323
  22. LYNPARZA [Suspect]
     Active Substance: OLAPARIB
     Indication: MALIGNANT PERITONEAL NEOPLASM
     Dosage: 5TH ADMINISTRATION
     Route: 048
     Dates: start: 20170309, end: 20170323
  23. LYNPARZA [Suspect]
     Active Substance: OLAPARIB
     Indication: FALLOPIAN TUBE CANCER
     Dosage: 2ND ADMINISTRATION
     Route: 048
     Dates: start: 20161201
  24. LYNPARZA [Suspect]
     Active Substance: OLAPARIB
     Indication: MALIGNANT PERITONEAL NEOPLASM
     Dosage: 2ND ADMINISTRATION
     Route: 048
     Dates: start: 20161201
  25. LYNPARZA [Suspect]
     Active Substance: OLAPARIB
     Indication: OVARIAN CANCER
     Dosage: 3RD ADMINISTRATION
     Route: 048
     Dates: start: 20170112

REACTIONS (1)
  - Malignant neoplasm progression [Unknown]
